FAERS Safety Report 9854369 (Version 4)
Quarter: 2014Q2

REPORT INFORMATION
  Report Type: Report from Study
  Country: US (occurrence: US)
  Receive Date: 20140130
  Receipt Date: 20140505
  Transmission Date: 20141212
  Serious: Yes (Hospitalization)
  Sender: FDA-Public Use
  Company Number: US-BIOGENIDEC-2014BI008139

PATIENT
  Age: 60 Year
  Sex: Male

DRUGS (1)
  1. TYSABRI [Suspect]
     Indication: MULTIPLE SCLEROSIS
     Route: 042
     Dates: start: 20131018, end: 20131223

REACTIONS (11)
  - Chest discomfort [Recovered/Resolved]
  - Herpes zoster [Recovered/Resolved]
  - Thrombosis [Unknown]
  - Abasia [Recovered/Resolved with Sequelae]
  - Atrial fibrillation [Unknown]
  - Myocardial infarction [Recovered/Resolved]
  - Loss of control of legs [Not Recovered/Not Resolved]
  - Pneumonia [Recovered/Resolved]
  - Muscular weakness [Recovered/Resolved]
  - Malaise [Recovered/Resolved]
  - Fatigue [Recovered/Resolved]
